FAERS Safety Report 5917613-8 (Version None)
Quarter: 2008Q4

REPORT INFORMATION
  Report Type: 
  Country: None (occurrence: None)
  Receive Date: 20081014
  Receipt Date: 20081003
  Transmission Date: 20090506
  Serious: Yes (Hospitalization)
  Sender: FDA-Public Use
  Company Number: US-MERCK-0809USA00519

PATIENT
  Age: 84 Year
  Sex: Female
  Weight: 55 kg

DRUGS (29)
  1. JANUVIA [Suspect]
     Indication: TYPE 2 DIABETES MELLITUS
     Route: 048
     Dates: start: 20070717, end: 20071001
  2. BONIVA [Concomitant]
     Indication: OSTEOPOROSIS
     Route: 048
     Dates: start: 20070426
  3. LIPITOR [Concomitant]
     Indication: BLOOD CHOLESTEROL
     Route: 048
     Dates: start: 20020122
  4. ATACAND [Concomitant]
     Indication: DIABETES MELLITUS
     Route: 048
     Dates: start: 20020326
  5. METOPROLOL [Concomitant]
     Indication: HYPERTENSION
     Route: 048
     Dates: start: 20020218
  6. GLUCOVANCE [Concomitant]
     Indication: DIABETES MELLITUS
     Route: 048
     Dates: start: 20020326
  7. PRANDIN [Concomitant]
     Indication: DIABETES MELLITUS
     Route: 065
     Dates: start: 20030108
  8. PROMETRIUM [Concomitant]
     Route: 065
  9. WELLBUTRIN XL [Concomitant]
     Route: 048
     Dates: start: 20030825
  10. TRICOR [Concomitant]
     Indication: BLOOD CHOLESTEROL
     Route: 065
     Dates: start: 20040413
  11. NEXIUM [Concomitant]
     Indication: GASTROOESOPHAGEAL REFLUX DISEASE
     Route: 065
     Dates: start: 20030128
  12. CHOLECALCIFEROL [Concomitant]
     Route: 065
  13. VITAMIN E [Concomitant]
     Route: 065
  14. Q-10 [Concomitant]
     Route: 065
  15. ACTOS [Concomitant]
     Route: 065
  16. MAGNESIUM OXIDE [Concomitant]
     Route: 065
  17. CHROMIUM PICOLINATE [Concomitant]
     Route: 065
  18. OMEGA-3 MARINE TRIGLYCERIDES [Concomitant]
     Route: 065
  19. RISPERDAL [Concomitant]
     Route: 065
  20. CYANOCOBALAMIN [Concomitant]
     Route: 051
  21. CALCIUM CITRATE [Concomitant]
     Route: 065
  22. FERROUS SULFATE [Concomitant]
     Route: 065
  23. ONE SOURCE [Concomitant]
     Route: 065
  24. COD LIVER OIL [Concomitant]
     Route: 065
  25. AVANDIA [Concomitant]
     Indication: DIABETES MELLITUS
     Route: 048
     Dates: start: 20030103
  26. ZINC (UNSPECIFIED) [Concomitant]
     Route: 065
  27. LUNESTA [Concomitant]
     Route: 065
  28. FOLIC ACID [Concomitant]
     Route: 065
  29. VITAMINS (UNSPECIFIED) [Concomitant]
     Route: 065

REACTIONS (8)
  - ASTHENIA [None]
  - CARBOHYDRATE ANTIGEN 19-9 INCREASED [None]
  - CELLULITIS [None]
  - CONJUNCTIVAL HAEMORRHAGE [None]
  - DYSLIPIDAEMIA [None]
  - IRON DEFICIENCY ANAEMIA [None]
  - PANCREATITIS ACUTE [None]
  - RENAL CYST [None]
